FAERS Safety Report 7943599-0 (Version None)
Quarter: 2011Q4

REPORT INFORMATION
  Report Type: 
  Country: None (occurrence: None)
  Receive Date: 20111128
  Receipt Date: 20111115
  Transmission Date: 20120403
  Serious: Yes (Other)
  Sender: FDA-Public Use
  Company Number: CH-JNJFOC-20111106692

PATIENT
  Age: 72 Year
  Sex: Female

DRUGS (11)
  1. CLADRIBINE [Suspect]
     Route: 065
  2. CHLORAMBUCIL [Suspect]
     Route: 065
  3. CHLORAMBUCIL [Suspect]
     Indication: WALDENSTROM'S MACROGLOBULINAEMIA
     Route: 065
  4. CHLORAMBUCIL [Suspect]
     Route: 065
  5. PREDNISONE TAB [Suspect]
     Indication: WALDENSTROM'S MACROGLOBULINAEMIA
     Route: 065
  6. PREDNISONE TAB [Suspect]
     Route: 065
  7. PREDNISONE TAB [Suspect]
     Route: 065
  8. CLADRIBINE [Suspect]
     Indication: WALDENSTROM'S MACROGLOBULINAEMIA
     Route: 065
  9. CLADRIBINE [Suspect]
     Route: 065
  10. PREDNISONE TAB [Suspect]
     Route: 065
  11. CHLORAMBUCIL [Suspect]
     Route: 065

REACTIONS (6)
  - BRONCHOPULMONARY ASPERGILLOSIS [None]
  - EYE INFECTION TOXOPLASMAL [None]
  - PNEUMONIA [None]
  - HERPES ZOSTER [None]
  - MYELODYSPLASTIC SYNDROME [None]
  - LEUKOENCEPHALOPATHY [None]
